FAERS Safety Report 12835012 (Version 4)
Quarter: 2017Q1

REPORT INFORMATION
  Report Type: Spontaneous
  Country: US (occurrence: US)
  Receive Date: 20161010
  Receipt Date: 20170307
  Transmission Date: 20170428
  Serious: Yes (Death, Hospitalization, Other)
  Sender: FDA-Public Use
  Company Number: US-ACTELION-A-US2016-143294

PATIENT
  Age: 53 Year
  Sex: Female

DRUGS (13)
  1. METOLAZONE. [Concomitant]
     Active Substance: METOLAZONE
  2. BUMETANIDE. [Concomitant]
     Active Substance: BUMETANIDE
  3. QVAR [Concomitant]
     Active Substance: BECLOMETHASONE DIPROPIONATE
  4. FOLIC ACID. [Concomitant]
     Active Substance: FOLIC ACID
  5. ADCIRCA [Concomitant]
     Active Substance: TADALAFIL
     Dosage: 20 MG, QD
     Route: 048
  6. ALBUTEROL. [Concomitant]
     Active Substance: ALBUTEROL
  7. METHOTREXATE. [Concomitant]
     Active Substance: METHOTREXATE
  8. AMLODIPINE [Concomitant]
     Active Substance: AMLODIPINE BESYLATE
  9. SPIRONOLACTONE. [Concomitant]
     Active Substance: SPIRONOLACTONE
  10. OPSUMIT [Suspect]
     Active Substance: MACITENTAN
     Indication: PULMONARY ARTERIAL HYPERTENSION
     Dosage: 10 MG, QD
     Route: 048
     Dates: start: 20141028
  11. TYVASO [Concomitant]
     Active Substance: TREPROSTINIL
     Dosage: 11 BREATHS, QID
  12. MAGNESIUM [Concomitant]
     Active Substance: MAGNESIUM
  13. POTASSIUM [Concomitant]
     Active Substance: POTASSIUM

REACTIONS (6)
  - Oxygen saturation decreased [Unknown]
  - Dyspnoea exertional [Unknown]
  - Oxygen supplementation [Unknown]
  - Cardiac failure [Fatal]
  - Hysterectomy [Unknown]
  - Dyspnoea [Unknown]

NARRATIVE: CASE EVENT DATE: 20160928
